FAERS Safety Report 9936752 (Version 1)
Quarter: 2014Q1

REPORT INFORMATION
  Report Type: Spontaneous
  Country: IN (occurrence: None)
  Receive Date: 20140107
  Receipt Date: 20140107
  Transmission Date: 20141002
  Serious: Yes (Other)
  Sender: FDA-Public Use
  Company Number: 2013-01817

PATIENT
  Age: 28 Year
  Sex: 0

DRUGS (1)
  1. TOPIRAMATE [Suspect]
     Indication: HEADACHE

REACTIONS (1)
  - Angle closure glaucoma [None]
